FAERS Safety Report 24041538 (Version 1)
Quarter: 2024Q3

REPORT INFORMATION
  Report Type: Spontaneous
  Country: US (occurrence: US)
  Receive Date: 20240702
  Receipt Date: 20240702
  Transmission Date: 20241017
  Serious: No
  Sender: SAREPTA THERAPEUTICS
  Company Number: US-SAREPTA THERAPEUTICS INC.-SRP2023-003913

PATIENT
  Sex: Male
  Weight: 61.224 kg

DRUGS (2)
  1. EXONDYS 51 [Suspect]
     Active Substance: ETEPLIRSEN
     Indication: Duchenne muscular dystrophy
     Dosage: 30 MILLIGRAM/KILOGRAM, WEEKLY
     Dates: start: 2023
  2. EXONDYS 51 [Suspect]
     Active Substance: ETEPLIRSEN
     Dosage: 1700 MILLIGRAM, WEEKLY ( VIA PORT)
     Route: 042
     Dates: start: 20231021

REACTIONS (1)
  - Poor venous access [Recovered/Resolved]
